FAERS Safety Report 7224604-6 (Version None)
Quarter: 2011Q1

REPORT INFORMATION
  Report Type: 
  Country: None (occurrence: None)
  Receive Date: 20110106
  Receipt Date: 20110106
  Transmission Date: 20110831
  Serious: Yes (Hospitalization)
  Sender: FDA-Public Use
  Company Number: None

PATIENT
  Age: 79 Year
  Sex: Female
  Weight: 63.6 kg

DRUGS (12)
  1. PEPCID [Concomitant]
  2. DIOVAN [Concomitant]
  3. ZETIA [Concomitant]
  4. M.V.I. [Concomitant]
  5. SANCTURA XR [Concomitant]
  6. RITUXIMAB [Suspect]
     Indication: ANAEMIA HAEMOLYTIC AUTOIMMUNE
     Dosage: IV RECENT
     Route: 042
  7. LEVEMIR [Concomitant]
  8. SOTALOL [Concomitant]
  9. WARFARIN SODIUM [Concomitant]
  10. NORVASC [Concomitant]
  11. VIT D [Concomitant]
  12. UNISOM [Concomitant]

REACTIONS (4)
  - CHEST DISCOMFORT [None]
  - CHILLS [None]
  - HYPERTENSION [None]
  - PULMONARY OEDEMA [None]
